FAERS Safety Report 6856596-3 (Version None)
Quarter: 2010Q3

REPORT INFORMATION
  Report Type: 
  Country: None (occurrence: None)
  Receive Date: 20100719
  Receipt Date: 20100708
  Transmission Date: 20110219
  Serious: Yes (Other)
  Sender: FDA-Public Use
  Company Number: DE-PFIZER INC-2010086385

PATIENT
  Sex: Male

DRUGS (3)
  1. VFEND [Suspect]
     Indication: FUNGAL INFECTION
  2. VALPROATE SODIUM [Interacting]
     Indication: EPILEPSY
  3. VINCRISTINE [Concomitant]
     Indication: ACUTE LYMPHOCYTIC LEUKAEMIA

REACTIONS (2)
  - DRUG INTERACTION [None]
  - POLYNEUROPATHY [None]
